FAERS Safety Report 25004731 (Version 2)
Quarter: 2025Q1

REPORT INFORMATION
  Report Type: Report from Study
  Country: CA (occurrence: CA)
  Receive Date: 20250224
  Receipt Date: 20250307
  Transmission Date: 20250409
  Serious: Yes (Hospitalization)
  Sender: SAMSUNG BIOEPIS
  Company Number: CA-SAMSUNG BIOEPIS-SB-2025-06319

PATIENT
  Age: 70 Year
  Sex: Male
  Weight: 86 kg

DRUGS (1)
  1. RENFLEXIS [Suspect]
     Active Substance: INFLIXIMAB-ABDA
     Indication: Psoriasis
     Route: 042
     Dates: start: 2023

REACTIONS (4)
  - Chronic obstructive pulmonary disease [Unknown]
  - Influenza [Unknown]
  - Incorrect drug administration rate [Unknown]
  - Off label use [Unknown]
